FAERS Safety Report 6518083-1 (Version None)
Quarter: 2009Q4

REPORT INFORMATION
  Report Type: 
  Country: None (occurrence: None)
  Receive Date: 20091218
  Receipt Date: 20091204
  Transmission Date: 20100525
  Serious: Yes (Hospitalization)
  Sender: FDA-Public Use
  Company Number: DSJ-2009-13503

PATIENT
  Age: 65 Year
  Sex: Female
  Weight: 52.8 kg

DRUGS (4)
  1. OLMESARTAN MEDOXOMIL [Suspect]
     Indication: HYPERTENSION
     Dosage: 20 MG (20 MG,1 IN 1 D),PER ORAL
     Route: 048
     Dates: start: 20090301, end: 20091006
  2. LASIX (FUROSEMIDE) (TABLET) (FUROSEMIDE) [Concomitant]
  3. FLOMOX (CEFCAPENE POVIXIL HYDROCHLORIDE) (TABLET) (CEFCAPENE PIVOXIL H [Concomitant]
  4. AMLODIPINE BESYLATE [Concomitant]

REACTIONS (12)
  - ALANINE AMINOTRANSFERASE INCREASED [None]
  - ANTINUCLEAR ANTIBODY INCREASED [None]
  - ASPARTATE AMINOTRANSFERASE INCREASED [None]
  - BLOOD CREATINE PHOSPHOKINASE INCREASED [None]
  - BLOOD IMMUNOGLOBULIN E INCREASED [None]
  - BLOOD LACTATE DEHYDROGENASE INCREASED [None]
  - COLLAGEN DISORDER [None]
  - DRUG INEFFECTIVE [None]
  - FACE OEDEMA [None]
  - MYOSITIS [None]
  - OEDEMA PERIPHERAL [None]
  - WHITE BLOOD CELL COUNT INCREASED [None]
